FAERS Safety Report 7213639-5 (Version None)
Quarter: 2010Q4

REPORT INFORMATION
  Report Type: 
  Country: None (occurrence: None)
  Receive Date: 20101126
  Receipt Date: 20091203
  Transmission Date: 20110411
  Serious: Yes (Other)
  Sender: FDA-Public Use
  Company Number: WAES 0912USA00843

PATIENT
  Age: 83 Year
  Sex: Female

DRUGS (2)
  1. FOSAMAX [Suspect]
     Indication: OSTEOPOROSIS
     Dosage: PO
     Route: 048
     Dates: start: 20020101, end: 20070101
  2. BONIVA [Suspect]
     Indication: OSTEOPOROSIS
     Dates: start: 20070101, end: 20080101

REACTIONS (5)
  - BONE DENSITY DECREASED [None]
  - MASTICATION DISORDER [None]
  - OSTEONECROSIS [None]
  - TOOTH DISORDER [None]
  - WEIGHT DECREASED [None]
